FAERS Safety Report 25775649 (Version 2)
Quarter: 2025Q3

REPORT INFORMATION
  Report Type: Spontaneous
  Country: US (occurrence: US)
  Receive Date: 20250909
  Receipt Date: 20250913
  Transmission Date: 20251020
  Serious: Yes (Other)
  Sender: AUROBINDO
  Company Number: US-AUROBINDO-AUR-APL-2025-044738

PATIENT
  Age: 3 Year

DRUGS (8)
  1. DIVALPROEX SODIUM [Suspect]
     Active Substance: DIVALPROEX SODIUM
     Indication: Epilepsy
     Route: 065
  2. LEVOTHYROXINE SODIUM [Suspect]
     Active Substance: LEVOTHYROXINE SODIUM
     Indication: Hypothyroidism
     Route: 065
  3. LEVETIRACETAM [Suspect]
     Active Substance: LEVETIRACETAM
     Indication: Epilepsy
     Route: 065
  4. LAMOTRIGINE [Suspect]
     Active Substance: LAMOTRIGINE
     Indication: Epilepsy
     Route: 065
  5. VALPROATE [Suspect]
     Active Substance: VALPROIC ACID
     Indication: Seizure
     Route: 065
  6. VALPROATE [Suspect]
     Active Substance: VALPROIC ACID
     Indication: Petit mal epilepsy
     Route: 065
  7. VALPROATE [Suspect]
     Active Substance: VALPROIC ACID
     Route: 065
  8. ETHOSUXIMIDE [Suspect]
     Active Substance: ETHOSUXIMIDE
     Indication: Seizure
     Dosage: 44 MILLIGRAM/KILOGRAM, ONCE A DAY
     Route: 065

REACTIONS (5)
  - Hypothyroidism [Recovered/Resolved]
  - Increased appetite [Recovered/Resolved]
  - Behaviour disorder [Recovered/Resolved]
  - Psychomotor hyperactivity [Recovered/Resolved]
  - Drug ineffective [Unknown]
